FAERS Safety Report 7704077-7 (Version None)
Quarter: 2011Q3

REPORT INFORMATION
  Report Type: 
  Country: None (occurrence: None)
  Receive Date: 20110823
  Receipt Date: 20110325
  Transmission Date: 20111222
  Serious: Yes (Other)
  Sender: FDA-Public Use
  Company Number: US-BRISTOL-MYERS SQUIBB COMPANY-15636566

PATIENT
  Sex: Male

DRUGS (4)
  1. ADRIAMYCIN PFS [Suspect]
     Dosage: 9 TREATMENTS
  2. VINBLASTINE SULFATE [Suspect]
     Dosage: 9 TREATMENTS
  3. BLEOMYCIN SULFATE [Suspect]
     Dosage: 9 TREATMENTS:PER TREATMENT 21MG TOTAL:189MG
  4. DACARBAZINE [Suspect]
     Dosage: 9 TREATMENTS

REACTIONS (1)
  - PULMONARY TOXICITY [None]
